FAERS Safety Report 12334739 (Version 9)
Quarter: 2018Q1

REPORT INFORMATION
  Report Type: Spontaneous
  Country: US (occurrence: US)
  Receive Date: 20160504
  Receipt Date: 20180316
  Transmission Date: 20180508
  Serious: No
  Sender: FDA-Public Use
  Company Number: US-PFIZER INC-2016235280

PATIENT
  Age: 42 Year
  Sex: Male
  Weight: 74.84 kg

DRUGS (7)
  1. ZITHROMAX [Suspect]
     Active Substance: AZITHROMYCIN DIHYDRATE
     Indication: INFECTION
  2. ZITHROMAX [Suspect]
     Active Substance: AZITHROMYCIN DIHYDRATE
     Indication: TENDON DISORDER
  3. ZITHROMAX [Suspect]
     Active Substance: AZITHROMYCIN DIHYDRATE
     Indication: CHLAMYDIAL INFECTION
     Dosage: 1500 MG, 2X/DAY
     Route: 048
     Dates: start: 2009, end: 2009
  4. ZITHROMAX [Suspect]
     Active Substance: AZITHROMYCIN DIHYDRATE
     Indication: REITER^S SYNDROME
     Dosage: 1500 MG, 2X/DAY
     Route: 048
     Dates: start: 20171028
  5. AZASITE [Concomitant]
     Active Substance: AZITHROMYCIN MONOHYDRATE
     Indication: CHORIORETINITIS
     Dosage: 1 GTT, UNK, [ONE DROP IN EACH EYE]
     Dates: end: 20171030
  6. ZITHROMAX [Suspect]
     Active Substance: AZITHROMYCIN DIHYDRATE
     Indication: RAYNAUD^S PHENOMENON
     Dosage: UNK
  7. LEVAQUIN [Concomitant]
     Active Substance: LEVOFLOXACIN
     Dosage: UNK

REACTIONS (11)
  - Product use in unapproved indication [Unknown]
  - Drug ineffective [Unknown]
  - Intentional product use issue [Unknown]
  - Nausea [Unknown]
  - Product quality issue [Unknown]
  - Lymphoedema [Recovered/Resolved]
  - Rash macular [Unknown]
  - Suspected counterfeit product [Unknown]
  - Product use issue [Unknown]
  - Joint dislocation [Recovered/Resolved]
  - Skin disorder [Recovered/Resolved]

NARRATIVE: CASE EVENT DATE: 2010
